FAERS Safety Report 5318482-X (Version None)
Quarter: 2007Q2

REPORT INFORMATION
  Report Type: 
  Country: None (occurrence: None)
  Receive Date: 20070501
  Receipt Date: 20070425
  Transmission Date: 20071010
  Serious: Yes (Other)
  Sender: FDA-Public Use
  Company Number: GXKR2007DE03729

PATIENT
  Age: 80 Year
  Sex: Male

DRUGS (1)
  1. IBUHEXAL (NGX)(IBUPROFEN) UNKNOWN [Suspect]
     Dosage: ORAL
     Route: 048

REACTIONS (2)
  - AMBLYOPIA [None]
  - BLINDNESS UNILATERAL [None]
